FAERS Safety Report 8134418-0 (Version None)
Quarter: 2012Q1

REPORT INFORMATION
  Report Type: 
  Country: None (occurrence: None)
  Receive Date: 20120209
  Receipt Date: 20120131
  Transmission Date: 20120608
  Serious: Yes (Hospitalization)
  Sender: FDA-Public Use
  Company Number: AUR-APU-2012-00416

PATIENT
  Age: 46 Year
  Sex: Female

DRUGS (4)
  1. CITALOPRAM HYDROBROMIDE [Suspect]
     Indication: PRODUCT USED FOR UNKNOWN INDICATION
     Dates: start: 20111201, end: 20120104
  2. LORATADINE [Concomitant]
  3. PREDNISOLONE [Suspect]
     Indication: PRODUCT USED FOR UNKNOWN INDICATION
  4. CETRIZINE (CETIRIZINE HYDROCHLORIDE) [Concomitant]

REACTIONS (2)
  - URTICARIA [None]
  - NO THERAPEUTIC RESPONSE [None]
